FAERS Safety Report 7646612-3 (Version None)
Quarter: 2011Q3

REPORT INFORMATION
  Report Type: 
  Country: None (occurrence: None)
  Receive Date: 20110729
  Receipt Date: 20110729
  Transmission Date: 20111222
  Serious: Yes (Other)
  Sender: FDA-Public Use
  Company Number: None

PATIENT
  Sex: Female

DRUGS (1)
  1. GILENYA [Suspect]
     Indication: MULTIPLE SCLEROSIS
     Dosage: 0.5 MG DAILY PO
     Route: 048
     Dates: start: 20110518, end: 20110730

REACTIONS (2)
  - CHEST PAIN [None]
  - DRUG DOSE OMISSION [None]
